FAERS Safety Report 21290593 (Version 2)
Quarter: 2025Q2

REPORT INFORMATION
  Report Type: Spontaneous
  Country: IT (occurrence: IT)
  Receive Date: 20220903
  Receipt Date: 20250602
  Transmission Date: 20250717
  Serious: Yes (Hospitalization, Other)
  Sender: AUROBINDO
  Company Number: IT-SA-SAC20220817002411

PATIENT
  Age: 70 Year
  Sex: Female

DRUGS (1)
  1. LEVOFLOXACIN [Suspect]
     Active Substance: LEVOFLOXACIN
     Indication: Bronchitis
     Route: 065

REACTIONS (5)
  - SJS-TEN overlap [Recovered/Resolved]
  - Urinary tract infection bacterial [Recovering/Resolving]
  - Klebsiella infection [Recovering/Resolving]
  - Staphylococcal infection [Recovering/Resolving]
  - Device related infection [Recovering/Resolving]
